FAERS Safety Report 7914768-0 (Version None)
Quarter: 2011Q4

REPORT INFORMATION
  Report Type: 
  Country: None (occurrence: None)
  Receive Date: 20111115
  Receipt Date: 20111110
  Transmission Date: 20120403
  Serious: Yes (Life-Threatening, Hospitalization)
  Sender: FDA-Public Use
  Company Number: PHHY2011LB099013

PATIENT
  Age: 46 Year
  Sex: Female

DRUGS (3)
  1. LEVOTHYROXINE SODIUM [Concomitant]
  2. RASILEZ [Suspect]
     Indication: HYPERTENSION
     Dosage: 150 MG
     Route: 048
     Dates: start: 20111110, end: 20111110
  3. MYCOPHENOLATE MOFETIL (CELLCEPT) [Concomitant]

REACTIONS (3)
  - ANAPHYLACTIC REACTION [None]
  - RASH [None]
  - DYSPNOEA [None]
